FAERS Safety Report 25201986 (Version 1)
Quarter: 2025Q2

REPORT INFORMATION
  Report Type: Spontaneous
  Country: FR (occurrence: FR)
  Receive Date: 20250416
  Receipt Date: 20250416
  Transmission Date: 20250716
  Serious: Yes (Other)
  Sender: AUROBINDO
  Company Number: FR-AFSSAPS-PB2025000368

PATIENT
  Age: 77 Year
  Sex: Male

DRUGS (3)
  1. DAPTOMYCIN [Suspect]
     Active Substance: DAPTOMYCIN
     Indication: Staphylococcal bacteraemia
     Dosage: 500 MILLIGRAM, ONCE A DAY
     Route: 042
     Dates: start: 20250224, end: 20250310
  2. MEROPENEM [Suspect]
     Active Substance: MEROPENEM
     Indication: Staphylococcal bacteraemia
     Dosage: 1 GRAM, 3 TIMES A DAY
     Route: 042
     Dates: start: 20250224, end: 20250228
  3. CEFTRIAXONE [Suspect]
     Active Substance: CEFTRIAXONE
     Indication: Staphylococcal bacteraemia
     Route: 042
     Dates: start: 20250301, end: 20250310

REACTIONS (2)
  - Cholestasis [Not Recovered/Not Resolved]
  - Hepatic cytolysis [Recovering/Resolving]

NARRATIVE: CASE EVENT DATE: 20250301
